FAERS Safety Report 5058946-X (Version None)
Quarter: 2006Q3

REPORT INFORMATION
  Report Type: 
  Country: None (occurrence: None)
  Receive Date: 20060721
  Receipt Date: 20060718
  Transmission Date: 20061208
  Serious: Yes (Death)
  Sender: FDA-Public Use
  Company Number: PHBS2006PH10705

PATIENT

DRUGS (1)
  1. ZELNORM [Suspect]
     Route: 048

REACTIONS (2)
  - ABDOMINAL PAIN UPPER [None]
  - DEATH [None]
